FAERS Safety Report 17520323 (Version 4)
Quarter: 2020Q1

REPORT INFORMATION
  Report Type: Report from Study
  Country: US (occurrence: US)
  Receive Date: 20200310
  Receipt Date: 20200327
  Transmission Date: 20200409
  Serious: No
  Sender: FDA-Public Use
  Company Number: US-BAUSCH-BL-2020-002212

PATIENT
  Age: 56 Year
  Sex: Female

DRUGS (7)
  1. ADVIL [Concomitant]
     Active Substance: IBUPROFEN
     Indication: PRODUCT USED FOR UNKNOWN INDICATION
  2. TYLENOL [Concomitant]
     Active Substance: ACETAMINOPHEN
     Indication: PRODUCT USED FOR UNKNOWN INDICATION
  3. ATORVASTATIN [Concomitant]
     Active Substance: ATORVASTATIN
     Indication: PRODUCT USED FOR UNKNOWN INDICATION
  4. JANUMET [Concomitant]
     Active Substance: METFORMIN HYDROCHLORIDE\SITAGLIPTIN PHOSPHATE
     Indication: PRODUCT USED FOR UNKNOWN INDICATION
  5. SILIQ [Suspect]
     Active Substance: BRODALUMAB
     Indication: HIDRADENITIS
     Dosage: 210 MG/1.5 ML, PREFILLED SYRINGE, UNDER THE SKIN, WEEKS 0, 1, 2 THEN EVERY WEEK THEREAFTER
     Route: 058
     Dates: start: 20191220, end: 202003
  6. VENLAFAXINE [Concomitant]
     Active Substance: VENLAFAXINE HYDROCHLORIDE
     Indication: PRODUCT USED FOR UNKNOWN INDICATION
  7. SILIQ [Suspect]
     Active Substance: BRODALUMAB
     Indication: OFF LABEL USE

REACTIONS (9)
  - Fatigue [Unknown]
  - Dyspnoea [Unknown]
  - Frustration tolerance decreased [Unknown]
  - Drug effective for unapproved indication [Unknown]
  - Hidradenitis [Not Recovered/Not Resolved]
  - Condition aggravated [Not Recovered/Not Resolved]
  - Therapy cessation [Unknown]
  - Abdominal distension [Unknown]
  - Off label use [Unknown]

NARRATIVE: CASE EVENT DATE: 20191220
